FAERS Safety Report 17110322 (Version 3)
Quarter: 2019Q4

REPORT INFORMATION
  Report Type: Report from Study
  Country: JP (occurrence: JP)
  Receive Date: 20191204
  Receipt Date: 20191217
  Transmission Date: 20200122
  Serious: Yes (Hospitalization)
  Sender: FDA-Public Use
  Company Number: JP-ROCHE-2487088

PATIENT
  Age: 41 Year
  Sex: Male
  Weight: 54.4 kg

DRUGS (9)
  1. OXINORM [OXYCODONE HYDROCHLORIDE] [Concomitant]
     Active Substance: OXYCODONE HYDROCHLORIDE
     Indication: CANCER PAIN
     Dosage: UNCERTAIN DOSAGE AND SINGLE USE AND BEGINNING OF DOSAGE DAY: INVESTIGATIONAL ?AGENT BEFORE ADMINISTR
     Route: 048
  2. PROCHLORPERAZINE MALEATE. [Concomitant]
     Active Substance: PROCHLORPERAZINE MALEATE
     Indication: PROPHYLAXIS OF NAUSEA AND VOMITING
     Dosage: BEGINNING OF DOSAGE DAY: INVESTIGATIONAL AGENT BEFORE ADMINISTRATION
     Route: 048
  3. REBAMIPIDE [Concomitant]
     Active Substance: REBAMIPIDE
     Indication: GASTRITIS PROPHYLAXIS
     Dosage: BEGINNING OF DOSAGE DAY: INVESTIGATIONAL AGENT BEFORE ADMINISTRATION
     Route: 048
  4. LOXOPROFEN SODIUM HYDRATE [Concomitant]
     Active Substance: LOXOPROFEN SODIUM DIHYDRATE
     Indication: CANCER PAIN
     Dosage: BEGINNING OF DOSAGE DAY: INVESTIGATIONAL AGENT BEFORE ADMINISTRATION
     Route: 048
  5. MAGNESIUM OXIDE. [Concomitant]
     Active Substance: MAGNESIUM OXIDE
     Indication: CONSTIPATION PROPHYLAXIS
     Dosage: BEGINNING OF DOSAGE DAY: INVESTIGATIONAL AGENT BEFORE ADMINISTRATION
     Route: 048
  6. ATEZOLIZUMAB. [Suspect]
     Active Substance: ATEZOLIZUMAB
     Indication: NON-SMALL CELL LUNG CANCER
     Route: 041
     Dates: start: 20191108
  7. OXYCODONE HYDROCHLORIDE. [Concomitant]
     Active Substance: OXYCODONE HYDROCHLORIDE
     Indication: CANCER PAIN
     Dosage: BEGINNING OF DOSAGE DAY: INVESTIGATIONAL AGENT BEFORE ADMINISTRATION
     Route: 048
  8. SENNOSIDE [SENNOSIDE A+B] [Concomitant]
     Active Substance: SENNOSIDES A AND B
     Indication: CONSTIPATION PROPHYLAXIS
     Dosage: UNCERTAIN DOSAGE AND SINGLE USE AND BEGINNING OF DOSAGE DAY: INVESTIGATIONAL ?AGENT BEFORE ADMINISTR
     Route: 048
  9. BEVACIZUMAB. [Suspect]
     Active Substance: BEVACIZUMAB
     Indication: NON-SMALL CELL LUNG CANCER
     Route: 042
     Dates: start: 20191108

REACTIONS (1)
  - Pyrexia [Recovered/Resolved]

NARRATIVE: CASE EVENT DATE: 20191120
